FAERS Safety Report 5114100-4 (Version None)
Quarter: 2006Q3

REPORT INFORMATION
  Report Type: 
  Country: None (occurrence: None)
  Receive Date: 20060925
  Receipt Date: 20060912
  Transmission Date: 20061208
  Serious: Yes (Hospitalization)
  Sender: FDA-Public Use
  Company Number: PH-GLAXOSMITHKLINE-B0437951A

PATIENT
  Age: 79 Year
  Sex: Male
  Weight: 55.3 kg

DRUGS (2)
  1. DUTASTERIDE [Suspect]
     Indication: BENIGN PROSTATIC HYPERPLASIA
     Dosage: .5MG PER DAY
     Route: 048
     Dates: start: 20040529
  2. TAMSULOSIN HCL [Suspect]
     Indication: BENIGN PROSTATIC HYPERPLASIA
     Dosage: .4MG PER DAY
     Route: 048
     Dates: start: 20040529

REACTIONS (15)
  - ABDOMINAL PAIN UPPER [None]
  - ANOREXIA [None]
  - AORTIC DISORDER [None]
  - ARTERIOSCLEROSIS [None]
  - ASTHENIA [None]
  - BLOOD CHOLESTEROL DECREASED [None]
  - BLOOD GLUCOSE INCREASED [None]
  - BLOOD TRIGLYCERIDES DECREASED [None]
  - CALCINOSIS [None]
  - HAEMOGLOBIN DECREASED [None]
  - HEPATIC MASS [None]
  - HIGH DENSITY LIPOPROTEIN DECREASED [None]
  - NEUTROPHIL PERCENTAGE INCREASED [None]
  - PANCREATIC DISORDER [None]
  - RENAL CYST [None]
